FAERS Safety Report 5287127-X (Version None)
Quarter: 2007Q2

REPORT INFORMATION
  Report Type: 
  Country: None (occurrence: None)
  Receive Date: 20070404
  Receipt Date: 20070326
  Transmission Date: 20071010
  Serious: Yes (Hospitalization, Other)
  Sender: FDA-Public Use
  Company Number: US-PFIZER INC-2007010347

PATIENT
  Sex: Male

DRUGS (7)
  1. EXUBERA [Suspect]
     Indication: DIABETES MELLITUS INSULIN-DEPENDENT
  2. SYMLIN [Concomitant]
  3. HUMALOG [Concomitant]
     Dosage: TEXT:SLIDING SCALE
  4. LANTUS [Concomitant]
  5. LISINOPRIL [Concomitant]
     Indication: RENAL DISORDER
  6. SIMVASTATIN [Concomitant]
  7. AMITRIPTYLINE HCL [Concomitant]
     Indication: SLEEP DISORDER

REACTIONS (3)
  - BLOOD GLUCOSE DECREASED [None]
  - CONFUSIONAL STATE [None]
  - LOSS OF CONSCIOUSNESS [None]
